FAERS Safety Report 5264616-5 (Version None)
Quarter: 2007Q1

REPORT INFORMATION
  Report Type: 
  Country: None (occurrence: None)
  Receive Date: 20061122
  Receipt Date: 20060210
  Transmission Date: 20070707
  Serious: Yes (Hospitalization)
  Sender: FDA-Public Use
  Company Number: 2006MP000128

PATIENT
  Age: 19 Year
  Sex: Male
  Weight: 108.8633 kg

DRUGS (7)
  1. GLIADEL [Suspect]
     Indication: GLIOBLASTOMA MULTIFORME
     Dosage: 46.2 MG;X1;ICERE
     Dates: start: 20051003
  2. DILANTIN [Concomitant]
  3. ACETAMINOPHEN [Concomitant]
  4. TEMODAR [Concomitant]
  5. ZOFRAN [Concomitant]
  6. KEPPRA [Concomitant]
  7. DECADRON [Concomitant]

REACTIONS (1)
  - CONVULSION [None]
